FAERS Safety Report 11008291 (Version 1)
Quarter: 2015Q1

REPORT INFORMATION
  Report Type: Spontaneous
  Country: US (occurrence: None)
  Receive Date: 20150313
  Receipt Date: 20150313
  Transmission Date: 20150721
  Serious: Yes (Other)
  Sender: FDA-Public Use
  Company Number: GNE257417

PATIENT
  Age: 31 Year
  Sex: Female
  Weight: 94.35 kg

DRUGS (25)
  1. ADVAIR DISKUS [Concomitant]
     Active Substance: FLUTICASONE PROPIONATE\SALMETEROL XINAFOATE
  2. NASONEX [Concomitant]
     Active Substance: MOMETASONE FUROATE
  3. THEOPHYLLINE [Concomitant]
     Active Substance: THEOPHYLLINE ANHYDROUS
  4. VERAPAMIL [Concomitant]
     Active Substance: VERAPAMIL HYDROCHLORIDE
  5. SINGULAIR (MONTELUKAST SODIUM) [Concomitant]
  6. ZOFRAN (ONDANSETRON) [Concomitant]
  7. NEXIUM [Concomitant]
     Active Substance: ESOMEPRAZOLE MAGNESIUM
  8. ZYRTEC [Concomitant]
     Active Substance: CETIRIZINE HYDROCHLORIDE
  9. TERAZOSIN [Concomitant]
     Active Substance: TERAZOSIN\TERAZOSIN HYDROCHLORIDE
  10. HYDROCHLOROTHIAZIDE. [Concomitant]
     Active Substance: HYDROCHLOROTHIAZIDE
  11. FORMOTEROL FUMARATE [Concomitant]
     Active Substance: FORMOTEROL FUMARATE
  12. ASTEPRO (AZELASTINE HYDROCHLORIDE) [Concomitant]
  13. SPIRIVA (TIOTROPIUM BROMIDE) [Concomitant]
  14. TRAMADOL [Concomitant]
     Active Substance: TRAMADOL
  15. GLICLAZIDE/METFORMIN HYDROCHLORIDE (GLICLAZIDE, METFORMIN HYDROCHLORIDE) [Concomitant]
  16. BENTYL (DICYCLOVERINE HYDROCHLORIDE) [Concomitant]
  17. METFORMIN [Concomitant]
     Active Substance: METFORMIN HYDROCHLORIDE
  18. CETIRIZINE [Concomitant]
     Active Substance: CETIRIZINE HYDROCHLORIDE
  19. PROVENTIL (SALBUTAMOL) [Concomitant]
  20. XOLAIR [Suspect]
     Active Substance: OMALIZUMAB
     Indication: ASTHMA
     Dosage: 375 MG, Q2W (375 MG, 1 IN 2 WK)
     Route: 058
     Dates: start: 20060201, end: 20080212
  21. AVAPRO [Concomitant]
     Active Substance: IRBESARTAN
  22. ACTOS [Concomitant]
     Active Substance: PIOGLITAZONE HYDROCHLORIDE
  23. XOPENEX HFA (LEVALBUTEROL TARTRATE) [Concomitant]
  24. PREDNISONE. [Concomitant]
     Active Substance: PREDNISONE
  25. PULMICORT TURBUHALER [Concomitant]
     Active Substance: BUDESONIDE

REACTIONS (3)
  - Pruritus [None]
  - Dyspnoea [None]
  - Epistaxis [None]

NARRATIVE: CASE EVENT DATE: 20080212
